FAERS Safety Report 8156108-0 (Version None)
Quarter: 2012Q1

REPORT INFORMATION
  Report Type: 
  Country: None (occurrence: None)
  Receive Date: 20120222
  Receipt Date: 20120220
  Transmission Date: 20120608
  Serious: Yes (Hospitalization, Other)
  Sender: FDA-Public Use
  Company Number: US-PFIZER INC-2012044846

PATIENT
  Sex: Female
  Weight: 82 kg

DRUGS (10)
  1. ATENOLOL [Concomitant]
     Dosage: UNK
  2. POTASSIUM [Concomitant]
     Dosage: UNK
  3. INSULIN [Concomitant]
     Dosage: UNK
  4. PROTONIX [Suspect]
     Indication: GASTRITIS
     Dosage: 40 MG, 1X/DAY
     Route: 048
     Dates: start: 20030101
  5. TRIAMTERENE [Concomitant]
     Dosage: UNK
  6. LISINOPRIL [Concomitant]
     Dosage: UNK
  7. PROTONIX [Suspect]
     Indication: OESOPHAGITIS
  8. COUMADIN [Suspect]
     Indication: ATRIAL FIBRILLATION
     Dosage: UNK
     Dates: start: 19980101
  9. PRAVASTATIN [Concomitant]
     Dosage: UNK
  10. METFORMIN [Concomitant]
     Dosage: UNK

REACTIONS (7)
  - INTERNATIONAL NORMALISED RATIO INCREASED [None]
  - URINARY TRACT INFECTION [None]
  - HAEMORRHAGE [None]
  - FALL [None]
  - DRUG INTERACTION [None]
  - HAND FRACTURE [None]
  - STAPHYLOCOCCAL INFECTION [None]
